FAERS Safety Report 24245277 (Version 1)
Quarter: 2024Q3

REPORT INFORMATION
  Report Type: Spontaneous
  Country: ZA (occurrence: None)
  Receive Date: 20240824
  Receipt Date: 20240824
  Transmission Date: 20241017
  Serious: Yes (Other)
  Sender: ASTRAZENECA
  Company Number: 2024A188755

PATIENT
  Sex: Female

DRUGS (6)
  1. BUDESONIDE\FORMOTEROL [Suspect]
     Active Substance: BUDESONIDE\FORMOTEROL
     Indication: Asthma
     Dosage: 4UG/INHAL UNKNOWN4UG/INHAL
     Route: 055
  2. BUDESONIDE\FORMOTEROL [Suspect]
     Active Substance: BUDESONIDE\FORMOTEROL
     Indication: Asthma
     Dosage: 160 UG/INHAL UNKNOWN160.0UG/INHAL UNKNOWN
     Route: 055
  3. SYNALEVE [Concomitant]
     Indication: Pain
  4. OMEPRAZOLE [Concomitant]
     Active Substance: OMEPRAZOLE
     Indication: Gastrooesophageal reflux disease
  5. PHENERGAN [Concomitant]
     Active Substance: PROMETHAZINE HYDROCHLORIDE
     Indication: Hypersensitivity
  6. AVOCADO OIL\SOYBEAN OIL [Concomitant]
     Active Substance: AVOCADO OIL\SOYBEAN OIL
     Indication: Osteoarthritis

REACTIONS (2)
  - Disability [Unknown]
  - Drug hypersensitivity [Unknown]
